FAERS Safety Report 11837458 (Version 1)
Quarter: 2015Q4

REPORT INFORMATION
  Report Type: Spontaneous
  Country: US (occurrence: US)
  Receive Date: 20151215
  Receipt Date: 20151215
  Transmission Date: 20160305
  Serious: Yes (Disabling)
  Sender: FDA-Public Use
  Company Number: US-RISING PHARMACEUTICALS, INC.-2015RIS00170

PATIENT
  Age: 28 Year
  Sex: Female

DRUGS (3)
  1. LEVOFLOXACIN. [Suspect]
     Active Substance: LEVOFLOXACIN
     Indication: SINUS OPERATION
     Dosage: 750 MG/DAY FOR 10 DAYS
  2. HYDROCODONE [Concomitant]
     Active Substance: HYDROCODONE
     Indication: PAIN
     Dosage: UNK, AS NEEDED
  3. LEVOFLOXACIN. [Suspect]
     Active Substance: LEVOFLOXACIN
     Indication: SINUSITIS
     Dosage: 750 MG/DAY FOR 7 DAYS

REACTIONS (21)
  - Peripheral coldness [None]
  - Blood glucose abnormal [None]
  - Weight bearing difficulty [None]
  - Bedridden [Not Recovered/Not Resolved]
  - Cognitive disorder [Not Recovered/Not Resolved]
  - Pain [Not Recovered/Not Resolved]
  - Arthralgia [None]
  - Tendon pain [None]
  - Sleep disorder [None]
  - Affective disorder [None]
  - Muscle contractions involuntary [None]
  - Muscular weakness [None]
  - Muscle atrophy [None]
  - Sensory disturbance [None]
  - Fatigue [None]
  - Dyspnoea [Not Recovered/Not Resolved]
  - Confusional state [None]
  - Gastrointestinal disorder [None]
  - Muscle spasms [None]
  - Nervous system disorder [None]
  - Toxicity to various agents [Not Recovered/Not Resolved]
